FAERS Safety Report 25396355 (Version 1)
Quarter: 2025Q2

REPORT INFORMATION
  Report Type: Spontaneous
  Country: US (occurrence: None)
  Receive Date: 20250603
  Receipt Date: 20250603
  Transmission Date: 20250717
  Serious: Yes (Life-Threatening, Hospitalization)
  Sender: FDA-CTU
  Company Number: None

PATIENT
  Age: 58 Year
  Sex: Female
  Weight: 73.8 kg

DRUGS (4)
  1. PAXIL [Suspect]
     Active Substance: PAROXETINE HYDROCHLORIDE
     Indication: Sleep disorder
     Dates: start: 20131001, end: 20180901
  2. ABILIFY [Suspect]
     Active Substance: ARIPIPRAZOLE
  3. RISPERIDONE [Suspect]
     Active Substance: RISPERIDONE
  4. TRAZODONE [Suspect]
     Active Substance: TRAZODONE HYDROCHLORIDE

REACTIONS (17)
  - Drug ineffective [None]
  - Dizziness [None]
  - Depression [None]
  - Eye pain [None]
  - Tremor [None]
  - Crying [None]
  - Insomnia [None]
  - Merycism [None]
  - Aggression [None]
  - Sleep terror [None]
  - Tremor [None]
  - Decreased interest [None]
  - Suicidal ideation [None]
  - Impaired quality of life [None]
  - Withdrawal syndrome [None]
  - Weight increased [None]
  - Lethargy [None]

NARRATIVE: CASE EVENT DATE: 20131001
